FAERS Safety Report 9819795 (Version 13)
Quarter: 2016Q1

REPORT INFORMATION
  Report Type: Report from Study
  Country: BR (occurrence: BR)
  Receive Date: 20140116
  Receipt Date: 20160314
  Transmission Date: 20160526
  Serious: Yes (Life-Threatening, Hospitalization, Other)
  Sender: FDA-Public Use
  Company Number: BR-ROCHE-1333990

PATIENT
  Sex: Female
  Weight: 60.06 kg

DRUGS (24)
  1. SPIRIVA [Concomitant]
     Active Substance: TIOTROPIUM BROMIDE MONOHYDRATE
     Route: 065
     Dates: start: 201408
  2. SERETIDE [Concomitant]
     Active Substance: FLUTICASONE FUROATE\SALMETEROL XINAFOATE
     Dosage: 50/500 MG , 2 PUFFS DAILY (1 IN THE MORNING AND 1 AT NIGHT)
     Route: 065
     Dates: start: 201408
  3. XOLAIR [Suspect]
     Active Substance: OMALIZUMAB
     Route: 058
     Dates: start: 200507
  4. XOLAIR [Suspect]
     Active Substance: OMALIZUMAB
     Route: 058
     Dates: start: 2010, end: 2010
  5. XOLAIR [Suspect]
     Active Substance: OMALIZUMAB
     Dosage: 2 AMPOULES PER MONTH
     Route: 058
     Dates: start: 2006, end: 2011
  6. TEOLONG [Concomitant]
     Route: 065
  7. XOLAIR [Suspect]
     Active Substance: OMALIZUMAB
     Route: 058
     Dates: start: 20140930
  8. XOLAIR [Suspect]
     Active Substance: OMALIZUMAB
     Route: 058
     Dates: start: 20130613
  9. FORASEQ (BRAZIL) [Concomitant]
     Active Substance: BUDESONIDE\FORMOTEROL FUMARATE
  10. XOLAIR [Suspect]
     Active Substance: OMALIZUMAB
     Indication: ASTHMA
     Route: 058
     Dates: start: 2004
  11. BEROTEC [Concomitant]
     Active Substance: FENOTEROL HYDROBROMIDE
     Route: 065
     Dates: start: 2004
  12. FLIXOTIDE [Concomitant]
     Active Substance: FLUTICASONE PROPIONATE
     Route: 065
     Dates: start: 201601
  13. XOLAIR [Suspect]
     Active Substance: OMALIZUMAB
     Route: 058
     Dates: start: 2009, end: 2009
  14. CORTISONE [Concomitant]
     Active Substance: CORTISONE\HYDROCORTISONE
     Route: 065
  15. SINGULAIR [Concomitant]
     Active Substance: MONTELUKAST SODIUM
  16. TIOTROPIUM BROMIDE [Concomitant]
     Active Substance: TIOTROPIUM BROMIDE
     Route: 065
  17. XOLAIR [Suspect]
     Active Substance: OMALIZUMAB
     Dosage: 150 AMPOULES
     Route: 058
  18. ATROVENT [Concomitant]
     Active Substance: IPRATROPIUM BROMIDE
     Route: 065
     Dates: start: 2004
  19. MONTELAIR [Concomitant]
     Active Substance: MONTELUKAST SODIUM
     Route: 065
  20. XOLAIR [Suspect]
     Active Substance: OMALIZUMAB
     Route: 058
  21. SPIRIVA [Concomitant]
     Active Substance: TIOTROPIUM BROMIDE MONOHYDRATE
     Route: 065
     Dates: start: 20140713, end: 20140713
  22. AMINOPHYLLINE. [Concomitant]
     Active Substance: AMINOPHYLLINE
     Route: 065
  23. MONTELAIR [Concomitant]
     Active Substance: MONTELUKAST SODIUM
     Route: 065
     Dates: start: 201408
  24. RELVAR [Concomitant]
     Active Substance: FLUTICASONE FUROATE\VILANTEROL TRIFENATATE
     Route: 065
     Dates: start: 201502

REACTIONS (26)
  - Cardiac arrest [Recovering/Resolving]
  - Blood pressure increased [Not Recovered/Not Resolved]
  - Pneumonia [Recovering/Resolving]
  - Haematemesis [Unknown]
  - Chronic sinusitis [Not Recovered/Not Resolved]
  - Hypotension [Not Recovered/Not Resolved]
  - Injection site discomfort [Not Recovered/Not Resolved]
  - Heart rate increased [Not Recovered/Not Resolved]
  - Vomiting [Not Recovered/Not Resolved]
  - Injection site erythema [Not Recovered/Not Resolved]
  - Speech disorder [Not Recovered/Not Resolved]
  - Lung disorder [Not Recovered/Not Resolved]
  - Asthenia [Unknown]
  - Dry mouth [Not Recovered/Not Resolved]
  - Asthma [Recovering/Resolving]
  - Blood immunoglobulin E increased [Not Recovered/Not Resolved]
  - Injection site pain [Not Recovered/Not Resolved]
  - Menorrhagia [Unknown]
  - Feeling abnormal [Unknown]
  - Weight decreased [Recovering/Resolving]
  - Haemorrhage [Not Recovered/Not Resolved]
  - Post procedural haemorrhage [Not Recovered/Not Resolved]
  - Fatigue [Not Recovered/Not Resolved]
  - Anaemia [Unknown]
  - Cerebrovascular accident [Not Recovered/Not Resolved]
  - Drug ineffective [Unknown]

NARRATIVE: CASE EVENT DATE: 2007
